FAERS Safety Report 17909053 (Version 1)
Quarter: 2020Q2

REPORT INFORMATION
  Report Type: Spontaneous
  Country: US (occurrence: US)
  Receive Date: 20200617
  Receipt Date: 20200617
  Transmission Date: 20200714
  Serious: Yes (Hospitalization)
  Sender: FDA-Public Use
  Company Number: US-ABBVIE-20K-163-3446244-00

PATIENT
  Sex: Female

DRUGS (3)
  1. SYNTHROID [Suspect]
     Active Substance: LEVOTHYROXINE SODIUM
     Indication: PRODUCT USED FOR UNKNOWN INDICATION
     Route: 048
  2. SYNTHROID [Suspect]
     Active Substance: LEVOTHYROXINE SODIUM
     Route: 048
  3. TIROSINT [Concomitant]
     Active Substance: LEVOTHYROXINE SODIUM
     Indication: PRODUCT USED FOR UNKNOWN INDICATION

REACTIONS (7)
  - Blood thyroid stimulating hormone abnormal [Recovered/Resolved]
  - Goitre [Unknown]
  - Autoimmune thyroiditis [Unknown]
  - Blood thyroid stimulating hormone abnormal [Unknown]
  - Myocardial necrosis marker increased [Unknown]
  - Cardiac disorder [Unknown]
  - Thyroid mass [Unknown]

NARRATIVE: CASE EVENT DATE: 2013
